FAERS Safety Report 7422392 (Version 5)
Quarter: 2012Q4

REPORT INFORMATION
  Report Type: Report from Study
  Country: BR (occurrence: BR)
  Receive Date: 20100616
  Receipt Date: 20121003
  Transmission Date: 20130627
  Serious: Yes (Life-Threatening, Hospitalization)
  Sender: FDA-Public Use
  Company Number: PHHO2010BR08710

PATIENT
  Age: 72 Year
  Sex: Female
  Weight: 73 kg

DRUGS (1)
  1. AMN107 [Suspect]
     Indication: GASTROINTESTINAL STROMAL TUMOUR
     Dosage: 800 mg, QD
     Route: 048
     Dates: start: 20100428, end: 20100608

REACTIONS (3)
  - Erysipelas [Recovering/Resolving]
  - Dermatitis bullous [Recovering/Resolving]
  - Post procedural complication [Recovering/Resolving]
